FAERS Safety Report 16698308 (Version 4)
Quarter: 2021Q2

REPORT INFORMATION
  Report Type: Report from Study
  Country: US (occurrence: US)
  Receive Date: 20190813
  Receipt Date: 20210623
  Transmission Date: 20210716
  Serious: No
  Sender: FDA-Public Use
  Company Number: US-ROCHE-2368908

PATIENT
  Age: 68 Year
  Sex: Male
  Weight: 85.7 kg

DRUGS (16)
  1. ROXICODONE [Concomitant]
     Active Substance: OXYCODONE HYDROCHLORIDE
  2. OXYCONTIN [Concomitant]
     Active Substance: OXYCODONE HYDROCHLORIDE
  3. CALAN (UNITED STATES) [Concomitant]
  4. ZETIA [Concomitant]
     Active Substance: EZETIMIBE
  5. LEUPROLIDE ACETATE. [Concomitant]
     Active Substance: LEUPROLIDE ACETATE
  6. GLUCOTROL [Concomitant]
     Active Substance: GLIPIZIDE
  7. CALCIUM CARBONATE;COLECALCIFEROL [Concomitant]
     Active Substance: CALCIUM CARBONATE\CHOLECALCIFEROL
  8. TURMERIC [Concomitant]
     Active Substance: HERBALS\TURMERIC
  9. NEURONTIN [Concomitant]
     Active Substance: GABAPENTIN
  10. ATEZOLIZUMAB. [Suspect]
     Active Substance: ATEZOLIZUMAB
     Route: 042
     Dates: start: 20191018
  11. XL184 [Suspect]
     Active Substance: CABOZANTINIB
     Route: 048
     Dates: start: 20191018
  12. ATEZOLIZUMAB. [Suspect]
     Active Substance: ATEZOLIZUMAB
     Indication: HORMONE-REFRACTORY PROSTATE CANCER
     Dosage: MOST RECENT DOSE PRIOR TO EVENT ONSET: 03/JUL/2019.
     Route: 041
     Dates: start: 20190612, end: 20190703
  13. XL184 [Suspect]
     Active Substance: CABOZANTINIB
     Indication: HORMONE-REFRACTORY PROSTATE CANCER
     Dosage: MOST RECENT DOSE PRIOR TO EVENT ONSET: 22/JUL/2019.
     Route: 048
     Dates: start: 20190612
  14. MIRALAX [Concomitant]
     Active Substance: POLYETHYLENE GLYCOL 3350
  15. SYNTHROID [Concomitant]
     Active Substance: LEVOTHYROXINE SODIUM
  16. SENOKOT?S [Concomitant]
     Active Substance: DOCUSATE SODIUM\SENNOSIDES

REACTIONS (2)
  - Aspartate aminotransferase increased [Recovered/Resolved]
  - Alanine aminotransferase increased [Recovered/Resolved]

NARRATIVE: CASE EVENT DATE: 20190723
